FAERS Safety Report 24068163 (Version 1)
Quarter: 2024Q3

REPORT INFORMATION
  Report Type: Spontaneous
  Country: FR (occurrence: FR)
  Receive Date: 20240710
  Receipt Date: 20240710
  Transmission Date: 20241016
  Serious: Yes (Hospitalization)
  Sender: PIERRE FABRE MEDICAMENT
  Company Number: None

PATIENT

DRUGS (9)
  1. PROPRANOLOL [Suspect]
     Active Substance: PROPRANOLOL HYDROCHLORIDE
     Indication: Cardiovascular event prophylaxis
     Dosage: UNK
     Route: 048
     Dates: start: 20240531
  2. PROPRANOLOL [Suspect]
     Active Substance: PROPRANOLOL HYDROCHLORIDE
     Indication: Off label use
  3. INNOHEP [Suspect]
     Active Substance: TINZAPARIN SODIUM
     Indication: Superficial vein thrombosis
     Dosage: 11000 [IU] DAILY
     Route: 058
     Dates: start: 20240523, end: 20240605
  4. AMIKACIN SULFATE [Suspect]
     Active Substance: AMIKACIN SULFATE
     Indication: Infection
     Dosage: 950 MG IN TOTAL
     Route: 042
     Dates: start: 20240508, end: 20240508
  5. AMIKACIN SULFATE [Suspect]
     Active Substance: AMIKACIN SULFATE
     Dosage: 500 MG IN TOTAL
     Route: 042
     Dates: start: 20240602, end: 20240602
  6. AMIKACIN SULFATE [Suspect]
     Active Substance: AMIKACIN SULFATE
     Dosage: 500 MG IN TOTAL
     Route: 042
     Dates: start: 20240606, end: 20240606
  7. ERTAPENEM [Suspect]
     Active Substance: ERTAPENEM
     Indication: Infection
     Dosage: 500 MG, DAILY
     Route: 042
     Dates: start: 20240527, end: 20240605
  8. OXAZEPAM [Suspect]
     Active Substance: OXAZEPAM
     Indication: Anxiety
     Dosage: 10 MG DAILY
     Route: 048
     Dates: start: 20240525, end: 20240605
  9. OXAZEPAM [Suspect]
     Active Substance: OXAZEPAM
     Dosage: 30 MG DAILY
     Route: 048
     Dates: start: 20240606, end: 20240612

REACTIONS (4)
  - Confusional state [Recovering/Resolving]
  - Product use issue [Unknown]
  - Product use in unapproved indication [Unknown]
  - Off label use [Unknown]

NARRATIVE: CASE EVENT DATE: 20240605
